FAERS Safety Report 9510962 (Version 8)
Quarter: 2016Q3

REPORT INFORMATION
  Report Type: Report from Study
  Country: BR (occurrence: BR)
  Receive Date: 20130910
  Receipt Date: 20160720
  Transmission Date: 20161109
  Serious: Yes (Hospitalization, Other)
  Sender: FDA-Public Use
  Company Number: BR-ROCHE-1272292

PATIENT
  Age: 37 Year
  Sex: Male
  Weight: 52 kg

DRUGS (6)
  1. LOSARTAN. [Concomitant]
     Active Substance: LOSARTAN
  2. HYDROCHLOROTHIAZIDE. [Concomitant]
     Active Substance: HYDROCHLOROTHIAZIDE
  3. PREDNISONE. [Concomitant]
     Active Substance: PREDNISONE
  4. DIPYRONE [Concomitant]
     Active Substance: DIPYRONE
  5. ACTEMRA [Suspect]
     Active Substance: TOCILIZUMAB
     Indication: RHEUMATOID ARTHRITIS
     Route: 042
     Dates: start: 201210
  6. PANTOPRAZOL [Concomitant]
     Active Substance: PANTOPRAZOLE SODIUM

REACTIONS (14)
  - Tibia fracture [Recovering/Resolving]
  - Speech disorder [Unknown]
  - Hypertension [Not Recovered/Not Resolved]
  - Pain [Not Recovered/Not Resolved]
  - Cholelithiasis [Not Recovered/Not Resolved]
  - Fall [Unknown]
  - Forearm fracture [Unknown]
  - Upper limb fracture [Unknown]
  - Gastric haemorrhage [Recovered/Resolved with Sequelae]
  - Lower limb fracture [Recovered/Resolved]
  - Traumatic fracture [Unknown]
  - Tracheal injury [Unknown]
  - Gamma-glutamyltransferase increased [Recovering/Resolving]
  - Back pain [Not Recovered/Not Resolved]

NARRATIVE: CASE EVENT DATE: 201210
